FAERS Safety Report 9421957 (Version 1)
Quarter: 2013Q3

REPORT INFORMATION
  Report Type: Spontaneous
  Country: US (occurrence: US)
  Receive Date: 20130726
  Receipt Date: 20130726
  Transmission Date: 20140515
  Serious: No
  Sender: FDA-Public Use
  Company Number: US-009507513-1307USA014639

PATIENT
  Age: 55 Year
  Sex: Female

DRUGS (5)
  1. JANUVIA [Suspect]
     Dosage: UNK, QD
     Route: 048
     Dates: start: 201304
  2. LISINOPRIL [Concomitant]
     Dosage: 5 MG, QD
  3. METFORMIN [Concomitant]
     Dosage: 100 MG, BID
  4. ALKA-SELTZER [Concomitant]
     Dosage: OCCASSIONAL
  5. ADVIL [Concomitant]
     Dosage: OCCASSIONAL

REACTIONS (11)
  - Dyspnoea [Unknown]
  - Crying [Unknown]
  - Eye pruritus [Unknown]
  - Chromaturia [Unknown]
  - Renal pain [Unknown]
  - Pruritus [Unknown]
  - Depressed mood [Unknown]
  - Malaise [Unknown]
  - Abdominal discomfort [Unknown]
  - Diarrhoea [Unknown]
  - Vomiting [Unknown]
